FAERS Safety Report 4784377-3 (Version None)
Quarter: 2005Q3

REPORT INFORMATION
  Report Type: 
  Country: None (occurrence: None)
  Receive Date: 20050928
  Receipt Date: 20050916
  Transmission Date: 20060218
  Serious: Yes (Other)
  Sender: FDA-Public Use
  Company Number: 2005130096

PATIENT
  Sex: Male

DRUGS (11)
  1. GLIGENCLAMIDE TABLET (GLIBENCLAMIDE) [Suspect]
     Indication: DIABETES MELLITUS NON-INSULIN-DEPENDENT
     Dosage: (BID)
  2. LEVOTHYROXINE SODIUM [Concomitant]
  3. PLAVIX [Concomitant]
  4. ECOTRIN (ACETYLSALICYLIC ACID) [Concomitant]
  5. LIPITOR [Concomitant]
  6. VERAPAMIL - SLOW RELEASE (VERAPAMIL HYDROCHLORIDE) [Concomitant]
  7. ALTACE [Concomitant]
  8. HYDROCHLOROTHIAZIDE [Concomitant]
  9. PATANOL [Concomitant]
  10. GLUCOSAMINE W/CHONDROITIN SULFATES (ASCORBIC ACID, CHONDROITIN SULFATE [Concomitant]
  11. CELEBREX [Concomitant]

REACTIONS (4)
  - DIABETES MELLITUS INADEQUATE CONTROL [None]
  - DRUG EFFECT DECREASED [None]
  - POLLAKIURIA [None]
  - PROSTATE CANCER [None]
